FAERS Safety Report 6434056-1 (Version None)
Quarter: 2009Q4

REPORT INFORMATION
  Report Type: 
  Country: None (occurrence: None)
  Receive Date: 20091110
  Receipt Date: 20090817
  Transmission Date: 20100525
  Serious: No
  Sender: FDA-Public Use
  Company Number: US-ASTRAZENECA-2009SE12602

PATIENT
  Age: 100 Year
  Sex: Male

DRUGS (5)
  1. PRILOSEC OTC [Suspect]
     Dosage: 1 TABLET, 3 /DAY
     Route: 048
  2. PLAVIX [Concomitant]
     Dosage: UNKNOWN
  3. AMBIEN [Concomitant]
     Dosage: UNKNOWN
  4. VALIUM [Concomitant]
     Dosage: UNKNOWN
  5. PROPANOL                           /00030001/ [Concomitant]
     Dosage: UNKNOWN

REACTIONS (3)
  - INAPPROPRIATE SCHEDULE OF DRUG ADMINISTRATION [None]
  - LABELLED DRUG-DRUG INTERACTION MEDICATION ERROR [None]
  - MELAENA [None]
